FAERS Safety Report 7751670-1 (Version None)
Quarter: 2011Q3

REPORT INFORMATION
  Report Type: 
  Country: None (occurrence: None)
  Receive Date: 20110914
  Receipt Date: 20110906
  Transmission Date: 20111222
  Serious: Yes (Hospitalization)
  Sender: FDA-Public Use
  Company Number: JP-AMGEN-JPNCT2011006966

PATIENT
  Age: 67 Year
  Sex: Male
  Weight: 50 kg

DRUGS (18)
  1. ANTIHISTAMINES [Concomitant]
     Indication: PROPHYLAXIS
     Dosage: UNK
     Route: 065
  2. CHLOR-TRIMETON [Concomitant]
     Dosage: UNK
     Route: 042
  3. IRINOTECAN HCL [Suspect]
     Indication: COLORECTAL CANCER
     Dosage: 150 MG, Q2WK
     Route: 041
     Dates: start: 20101112
  4. FLUOROURACIL [Suspect]
     Indication: COLORECTAL CANCER
     Dosage: 400 MG, Q2WK
     Route: 040
     Dates: start: 20101112
  5. PANITUMUMAB [Suspect]
     Indication: COLORECTAL CANCER
     Dosage: 6 MG/KG, Q2WK
     Route: 041
     Dates: start: 20101112, end: 20110422
  6. DECADRON [Concomitant]
     Dosage: UNK
     Route: 042
  7. PROTECADIN [Concomitant]
     Dosage: UNK
     Route: 048
  8. AMOBAN [Concomitant]
     Dosage: UNK
     Route: 048
  9. FLUOROURACIL [Suspect]
     Dosage: 2400 MG, Q2WK
     Route: 041
     Dates: start: 20101112
  10. CANDESARTAN CILEXETIL [Concomitant]
     Dosage: UNK
     Route: 048
  11. CORTICOSTEROIDS [Concomitant]
     Indication: PROPHYLAXIS
     Dosage: UNK
     Route: 065
  12. STRONG NEO-MINOPHAGEN C [Concomitant]
     Dosage: UNK
     Route: 042
  13. LEUCOVORIN CALCIUM [Suspect]
     Indication: COLORECTAL CANCER
     Dosage: 200 MG, Q2WK
     Route: 041
     Dates: start: 20101112
  14. CONIEL [Concomitant]
     Dosage: UNK
     Route: 048
  15. LOXONIN [Concomitant]
     Dosage: UNK
     Route: 048
  16. ALOXI [Concomitant]
     Dosage: UNK
     Route: 042
  17. PRIMPERAN TAB [Concomitant]
     Dosage: UNK
     Route: 042
  18. MAGNESIUM OXIDE [Concomitant]
     Dosage: UNK
     Route: 048

REACTIONS (5)
  - ANAEMIA [None]
  - RENAL DISORDER [None]
  - PARONYCHIA [None]
  - RENAL FAILURE ACUTE [None]
  - DRY SKIN [None]
